FAERS Safety Report 25865876 (Version 5)
Quarter: 2025Q4

REPORT INFORMATION
  Report Type: Report from Study
  Country: US (occurrence: US)
  Receive Date: 20250930
  Receipt Date: 20251031
  Transmission Date: 20260118
  Serious: Yes (Hospitalization)
  Sender: MALLINCKRODT
  Company Number: US-MALLINCKRODT-MNK202505990

PATIENT
  Sex: Male
  Weight: 11 kg

DRUGS (1)
  1. CORTICOTROPIN [Suspect]
     Active Substance: CORTICOTROPIN
     Indication: Epilepsy
     Dosage: UNKNOWN

REACTIONS (5)
  - Blood pressure increased [Unknown]
  - Increased appetite [Unknown]
  - Irritability [Recovered/Resolved]
  - Fatigue [Unknown]
  - Absence of immediate treatment response [Not Recovered/Not Resolved]
